FAERS Safety Report 15643711 (Version 1)
Quarter: 2018Q4

REPORT INFORMATION
  Report Type: Spontaneous
  Country: US (occurrence: US)
  Receive Date: 20181115
  Receipt Date: 20181115
  Transmission Date: 20190205
  Serious: Yes (Disabling)
  Sender: FDA-Public Use
  Company Number: None

PATIENT
  Age: 47 Year
  Sex: Female
  Weight: 75.15 kg

DRUGS (13)
  1. VALACYLCOVIR [Concomitant]
  2. ULTIMATE FLORA PROBIOTIC [Concomitant]
     Active Substance: PROBIOTICS NOS
  3. TOPIRAMATE. [Concomitant]
     Active Substance: TOPIRAMATE
  4. SERTRALINE [Concomitant]
     Active Substance: SERTRALINE HYDROCHLORIDE
  5. MULTI VITAM [Concomitant]
  6. CEPHALEXIN. [Concomitant]
     Active Substance: CEPHALEXIN
  7. DOXCYCLINE [Concomitant]
  8. CELECOXIB. [Concomitant]
     Active Substance: CELECOXIB
  9. LO-OGESTREL [Concomitant]
  10. IMPLANTED DEEP BRAIN STIMULATION DEVICE [Concomitant]
  11. (I DON^T HAVE THE BOX; INFO. GIVEN TO ME BY THE DOCTOR) PROMETHAZINE [Suspect]
     Active Substance: PROMETHAZINE HYDROCHLORIDE
     Indication: PROCEDURAL NAUSEA
     Dosage: ?          QUANTITY:1 INJECTION(S);?
     Route: 030
     Dates: start: 20181108, end: 20181108
  12. ZOLPIDEM [Concomitant]
     Active Substance: ZOLPIDEM\ZOLPIDEM TARTRATE
  13. MELATONIN [Concomitant]
     Active Substance: MELATONIN

REACTIONS (8)
  - Scar [None]
  - Product administered at inappropriate site [None]
  - Pain in extremity [None]
  - Injection site pain [None]
  - Incorrect drug administration rate [None]
  - Wrong technique in product usage process [None]
  - Skin necrosis [None]
  - Peripheral swelling [None]

NARRATIVE: CASE EVENT DATE: 20181108
